FAERS Safety Report 22307418 (Version 1)
Quarter: 2023Q2

REPORT INFORMATION
  Report Type: Spontaneous
  Country: PT (occurrence: None)
  Receive Date: 20230511
  Receipt Date: 20230511
  Transmission Date: 20230722
  Serious: Yes (Other)
  Sender: FDA-Public Use
  Company Number: 2023A102587

PATIENT
  Age: 77 Year
  Sex: Male

DRUGS (12)
  1. QUETIAPINE [Suspect]
     Active Substance: QUETIAPINE
     Indication: Sedation
     Dosage: 25MG PO 8/8H
     Route: 048
     Dates: start: 20230420
  2. BROMETO DE IPRATR?PIO [Concomitant]
  3. FLUCONAZOLE [Concomitant]
     Active Substance: FLUCONAZOLE
  4. SERTRALINE [Concomitant]
     Active Substance: SERTRALINE HYDROCHLORIDE
     Route: 048
  5. ALBUTEROL [Concomitant]
     Active Substance: ALBUTEROL
     Route: 055
  6. ESOMEPRAZOLE [Concomitant]
     Active Substance: ESOMEPRAZOLE
  7. MYCOSTATIN [Concomitant]
     Active Substance: NYSTATIN
     Dosage: 100000 U.I./ML
     Route: 048
  8. FUROSEMIDE [Concomitant]
     Active Substance: FUROSEMIDE
  9. METOCLOPRAMIDE HYDROCHLORIDE [Concomitant]
     Active Substance: METOCLOPRAMIDE HYDROCHLORIDE
  10. DEXMEDETOMIDINE [Concomitant]
     Active Substance: DEXMEDETOMIDINE
  11. CLONIDINA [Concomitant]
  12. METHYLPREDNISOLONE [Concomitant]
     Active Substance: METHYLPREDNISOLONE

REACTIONS (4)
  - Tachycardia [Recovered/Resolved]
  - Apathy [Recovered/Resolved]
  - Tachypnoea [Recovered/Resolved]
  - Pain [Recovered/Resolved]

NARRATIVE: CASE EVENT DATE: 20230420
